FAERS Safety Report 10182588 (Version 2)
Quarter: 2014Q2

REPORT INFORMATION
  Report Type: Spontaneous
  Country: US (occurrence: None)
  Receive Date: 20140416
  Receipt Date: 20140604
  Transmission Date: 20141212
  Serious: Yes (Hospitalization)
  Sender: FDA-Public Use
  Company Number: 163-POMAL-14012374

PATIENT
  Age: 77 Year
  Sex: Female
  Weight: 71.58 kg

DRUGS (10)
  1. POMALYST(POMALIDOMIDE)(3 MILLIGRAM, CAPSULES) [Suspect]
     Indication: PLASMA CELL MYELOMA
     Route: 048
     Dates: start: 20130909, end: 20131014
  2. ONDANSETRON(ONDANSETRON) [Concomitant]
  3. PROMETHAZINE(PROMETHAZINE) [Concomitant]
  4. GABAPENTIN(GABAPENTIN) [Concomitant]
  5. CEFUROXIME(CEFUROXIME) [Concomitant]
  6. VITAIN D (ERGOCALCIFEROL) [Concomitant]
  7. HYOSCYAMINE(HYOSCYAMINE) [Concomitant]
  8. KETOCONAZOLE(KETOCONAZOLE) [Concomitant]
  9. PREDNISONE(PREDNISONE) [Concomitant]
  10. ALPRAZOLAM(ALPRAZOLAM) [Concomitant]

REACTIONS (1)
  - Hyponatraemia [None]
